FAERS Safety Report 6805292-7 (Version None)
Quarter: 2010Q2

REPORT INFORMATION
  Report Type: 
  Country: None (occurrence: None)
  Receive Date: 20100628
  Receipt Date: 20070927
  Transmission Date: 20101027
  Serious: Yes (Life-Threatening)
  Sender: FDA-Public Use
  Company Number: US-PFIZER INC-2007081742

PATIENT
  Age: 55 Year
  Sex: Male
  Weight: 104 kg

DRUGS (7)
  1. SUTENT [Suspect]
     Indication: METASTATIC RENAL CELL CARCINOMA
     Route: 048
     Dates: start: 20070301
  2. SENNA [Concomitant]
  3. LATANOPROST [Concomitant]
  4. LEVOTHYROXINE SODIUM [Concomitant]
  5. FENTANYL [Concomitant]
     Route: 062
  6. SIMVASTATIN [Concomitant]
  7. DOCUSATE [Concomitant]

REACTIONS (1)
  - CARDIAC FAILURE CONGESTIVE [None]
